FAERS Safety Report 7798113-X (Version None)
Quarter: 2011Q4

REPORT INFORMATION
  Report Type: 
  Country: None (occurrence: None)
  Receive Date: 20111005
  Receipt Date: 20110930
  Transmission Date: 20120403
  Serious: Yes (Death, Other)
  Sender: FDA-Public Use
  Company Number: IT-CELGENEUS-083-C5013-11021435

PATIENT
  Sex: Male
  Weight: 65 kg

DRUGS (13)
  1. PLACEBO FOR CC-5013 [Suspect]
     Indication: MULTIPLE MYELOMA
     Route: 048
  2. ATENOLOL [Concomitant]
     Indication: HYPERTENSION
     Route: 048
     Dates: start: 20020101
  3. CALOIC NADROPARINE [Concomitant]
     Route: 058
     Dates: start: 20080212
  4. DARBEPOETIN ALFA [Concomitant]
     Route: 058
     Dates: start: 20070613
  5. ACETAMINOPHEN W/ CODEINE [Concomitant]
     Indication: BACK PAIN
     Route: 048
     Dates: start: 20070413
  6. MELPHALAN HYDROCHLORIDE [Suspect]
     Indication: MULTIPLE MYELOMA
     Route: 065
     Dates: start: 20070503, end: 20080207
  7. PERFENAZINA [Concomitant]
     Indication: DEPRESSION
     Route: 048
     Dates: start: 20070627
  8. CIPROFLOXACIN [Concomitant]
     Indication: INFECTION PROPHYLAXIS
     Route: 065
     Dates: start: 20010904
  9. AMITRIPTYLINE HCL [Concomitant]
     Indication: DEPRESSION
     Route: 048
     Dates: start: 20070627
  10. LENALIDOMIDE [Suspect]
     Indication: MULTIPLE MYELOMA
     Route: 048
     Dates: start: 20070503, end: 20080207
  11. PREDNISONE [Suspect]
     Indication: MULTIPLE MYELOMA
     Route: 065
     Dates: start: 20070503, end: 20080203
  12. LANSOPRAZOLE [Concomitant]
     Route: 048
     Dates: start: 20040101
  13. IRBESARTAN [Concomitant]
     Indication: HYPERTENSION
     Route: 048
     Dates: start: 20020101

REACTIONS (2)
  - POST PROCEDURAL COMPLICATION [None]
  - RECTAL CANCER [None]
